FAERS Safety Report 5684749-9 (Version None)
Quarter: 2008Q1

REPORT INFORMATION
  Report Type: 
  Country: None (occurrence: None)
  Receive Date: 20080328
  Receipt Date: 19900131
  Transmission Date: 20080703
  Serious: Yes (Death)
  Sender: FDA-Public Use
  Company Number: CA-ROCHE-12948

PATIENT
  Age: 63 Year
  Sex: Male

DRUGS (25)
  1. CYTOVENE [Suspect]
     Indication: PNEUMONIA CYTOMEGALOVIRAL
     Route: 042
     Dates: start: 19890610, end: 19890710
  2. CYTOVENE [Suspect]
     Route: 042
     Dates: start: 19890612, end: 19890624
  3. CYCLOSPORINE [Concomitant]
     Route: 048
  4. HALDOL [Concomitant]
     Route: 030
  5. AMPHOJEL [Concomitant]
     Route: 048
  6. CLINDAMYCIN HCL [Concomitant]
     Dates: end: 19890619
  7. SOLU-CORTEF [Concomitant]
  8. VIT K [Concomitant]
  9. GAMIMUNE [Concomitant]
  10. INTERFERON [Concomitant]
  11. FOLIC ACID [Concomitant]
     Route: 042
  12. ZANTAC [Concomitant]
     Route: 042
  13. SEPTRA [Concomitant]
  14. MORPHINE SULFATE [Concomitant]
     Route: 042
  15. PROTAMINE SULFATE [Concomitant]
  16. ADALAT [Concomitant]
     Route: 050
  17. GRAVOL TAB [Concomitant]
     Route: 042
  18. TYLENOL (CAPLET) [Concomitant]
     Route: 054
  19. CEFOTAXIME [Concomitant]
  20. CALCIUM CHLORIDE [Concomitant]
  21. IMIPENEM [Concomitant]
  22. LACTULOSE [Concomitant]
     Route: 050
  23. MOTILIUM [Concomitant]
     Route: 050
  24. SODIUM BICARBONATE [Concomitant]
  25. MYCOSTATIN [Concomitant]
     Route: 048

REACTIONS (1)
  - DEATH [None]
